FAERS Safety Report 12200582 (Version 3)
Quarter: 2016Q2

REPORT INFORMATION
  Report Type: Spontaneous
  Country: DE (occurrence: DE)
  Receive Date: 20160322
  Receipt Date: 20160525
  Transmission Date: 20160815
  Serious: Yes (Death, Hospitalization, Other)
  Sender: FDA-Public Use
  Company Number: DE-BAYER-2016-055509

PATIENT
  Age: 69 Year
  Sex: Male
  Weight: 51 kg

DRUGS (8)
  1. SEROQUEL [Concomitant]
     Active Substance: QUETIAPINE FUMARATE
  2. NEXAVAR [Suspect]
     Active Substance: SORAFENIB
     Indication: HEPATOCELLULAR CARCINOMA
     Dosage: UNK
     Route: 048
     Dates: start: 201309
  3. NEXAVAR [Suspect]
     Active Substance: SORAFENIB
     Indication: HEPATOCELLULAR CARCINOMA
     Dosage: 400 MG, BID
     Route: 048
     Dates: start: 201404, end: 2014
  4. NEXAVAR [Suspect]
     Active Substance: SORAFENIB
     Indication: HEPATOCELLULAR CARCINOMA
     Dosage: 400 MG, BID
     Route: 048
     Dates: start: 201406, end: 2016
  5. KALINOR [Concomitant]
     Active Substance: POTASSIUM CITRATE
  6. PANTOZOL [Concomitant]
     Active Substance: PANTOPRAZOLE SODIUM
  7. SPIRONOLACTON [Concomitant]
     Active Substance: SPIRONOLACTONE
  8. NOVALGIN [Concomitant]
     Active Substance: METAMIZOLE SODIUM

REACTIONS (18)
  - Penetrating aortic ulcer [Fatal]
  - Somnolence [None]
  - Metastases to spleen [Fatal]
  - Skin exfoliation [Recovering/Resolving]
  - Pain [None]
  - Retroperitoneal lymphadenopathy [Fatal]
  - Aortic dilatation [Fatal]
  - Hepatocellular carcinoma [Fatal]
  - Oedema peripheral [None]
  - Abdominal lymphadenopathy [Fatal]
  - Haemoglobin decreased [Fatal]
  - Diarrhoea [None]
  - General physical health deterioration [None]
  - Dyspnoea [None]
  - Cardiopulmonary failure [Fatal]
  - Haemothorax [Fatal]
  - Rash vesicular [Recovering/Resolving]
  - Asthenia [None]

NARRATIVE: CASE EVENT DATE: 201404
